FAERS Safety Report 8392404-X (Version None)
Quarter: 2012Q2

REPORT INFORMATION
  Report Type: 
  Country: None (occurrence: None)
  Receive Date: 20120529
  Receipt Date: 20120514
  Transmission Date: 20120825
  Serious: Yes (Hospitalization)
  Sender: FDA-Public Use
  Company Number: US-JUTA GMBH-2012-08508

PATIENT
  Age: 6 Month
  Sex: Male

DRUGS (1)
  1. RANITIDINE HYDROCHLORIDE [Suspect]
     Indication: GASTROOESOPHAGEAL REFLUX DISEASE
     Dosage: 1.5 TEASPOONS TWICE DAILY (22.5 MG/KG/DAY)
     Route: 048

REACTIONS (7)
  - IRRITABILITY [None]
  - INSOMNIA [None]
  - DYSKINESIA [None]
  - RESTLESSNESS [None]
  - DRUG PRESCRIBING ERROR [None]
  - OVERDOSE [None]
  - TREMOR [None]
